FAERS Safety Report 6894263-0 (Version None)
Quarter: 2010Q3

REPORT INFORMATION
  Report Type: 
  Country: None (occurrence: None)
  Receive Date: 20100728
  Receipt Date: 20100118
  Transmission Date: 20110219
  Serious: Yes (Hospitalization)
  Sender: FDA-Public Use
  Company Number: 005612

PATIENT
  Sex: Female
  Weight: 69 kg

DRUGS (12)
  1. CERTOLIZUMAB PEGOL (CDP870) [Suspect]
     Indication: RHEUMATOID ARTHRITIS
     Dosage: SUBCUTANEOUS
     Route: 058
     Dates: start: 20090922, end: 20091103
  2. HUMIRA [Concomitant]
  3. PREDNISOLONE [Concomitant]
  4. METHOTREXATE [Concomitant]
  5. FOLIC ACID [Concomitant]
  6. CALCIUM [Concomitant]
  7. VIGANTOLETTEN [Concomitant]
  8. METFORMIN HCL [Concomitant]
  9. SIMVASTATIN [Concomitant]
  10. BISOPROLOL [Concomitant]
  11. CELEBREX [Concomitant]
  12. OMEPRAZOLE [Concomitant]

REACTIONS (6)
  - CONTUSION [None]
  - HAEMOPHILUS INFECTION [None]
  - JOINT SWELLING [None]
  - MUSCULOSKELETAL PAIN [None]
  - SEPSIS [None]
  - SYNOVITIS [None]
